FAERS Safety Report 9217335 (Version 4)
Quarter: 2013Q3

REPORT INFORMATION
  Report Type: Spontaneous
  Country: US (occurrence: None)
  Receive Date: 20130404
  Receipt Date: 20130912
  Transmission Date: 20140515
  Serious: Yes (Hospitalization)
  Sender: FDA-Public Use
  Company Number: JPI-P-030921

PATIENT
  Age: 34 Year
  Sex: Female

DRUGS (1)
  1. XYREM (500 MILLIGRAM/MILLILITERS, SOLUTION) (SODIUM OXYBATE) [Suspect]
     Indication: INSOMNIA
     Route: 048
     Dates: start: 20121207

REACTIONS (8)
  - Insomnia [None]
  - Gingival operation [None]
  - Insomnia [None]
  - Weight decreased [None]
  - Nausea [None]
  - Retching [None]
  - Gastric neoplasm [None]
  - Vomiting [None]
